FAERS Safety Report 19442210 (Version 1)
Quarter: 2021Q2

REPORT INFORMATION
  Report Type: Spontaneous
  Country: DE (occurrence: DE)
  Receive Date: 20210621
  Receipt Date: 20210621
  Transmission Date: 20210717
  Serious: Yes (Congenital Anomaly, Other)
  Sender: FDA-Public Use
  Company Number: DE-PERRIGO-21DE007821

PATIENT
  Sex: Male

DRUGS (8)
  1. PROGESTERONE. [Suspect]
     Active Substance: PROGESTERONE
     Indication: FOETAL EXPOSURE DURING PREGNANCY
     Dosage: UNKNOWN, UNKNOWN
     Route: 064
  2. NAPROXEN SODIUM. [Suspect]
     Active Substance: NAPROXEN SODIUM
     Indication: FOETAL EXPOSURE DURING PREGNANCY
     Dosage: 500 MG, QD (GESTATION WEEK 4 TO 6)
     Route: 064
  3. NAPROXEN SODIUM. [Suspect]
     Active Substance: NAPROXEN SODIUM
     Dosage: 500 MG, PRN (GESTATION WEEK 3 TO 16)
     Route: 064
  4. DIMENHYDRINATE. [Suspect]
     Active Substance: DIMENHYDRINATE
     Indication: FOETAL EXPOSURE DURING PREGNANCY
     Dosage: UNKNOWN, UNKNOWN
     Route: 064
  5. LEVOTHYROXINE. [Suspect]
     Active Substance: LEVOTHYROXINE
     Indication: FOETAL EXPOSURE DURING PREGNANCY
     Dosage: UNKNOWN, UNKNOWN
     Route: 064
  6. IBUPROFEN. [Suspect]
     Active Substance: IBUPROFEN
     Indication: FOETAL EXPOSURE DURING PREGNANCY
     Dosage: UNKNOWN, UNKNOWN
     Route: 064
  7. OMEPRAZOLE. [Suspect]
     Active Substance: OMEPRAZOLE
     Indication: FOETAL EXPOSURE DURING PREGNANCY
     Dosage: UNKNOWN, UNKNOWN
     Route: 064
  8. METOCLOPRAMIDE. [Suspect]
     Active Substance: METOCLOPRAMIDE
     Indication: FOETAL EXPOSURE DURING PREGNANCY
     Dosage: UNKNOWN, UNKNOWN
     Route: 064

REACTIONS (4)
  - Premature baby [Unknown]
  - Congenital foot malformation [Unknown]
  - Congenital hand malformation [Unknown]
  - Foetal exposure during pregnancy [Recovered/Resolved]
